FAERS Safety Report 9201369 (Version 2)
Quarter: 2014Q4

REPORT INFORMATION
  Report Type: Spontaneous
  Country: JP (occurrence: JP)
  Receive Date: 20130401
  Receipt Date: 20141020
  Transmission Date: 20150529
  Serious: Yes (Hospitalization, Other)
  Sender: FDA-Public Use
  Company Number: JP-RANBAXY-2013R1-66583

PATIENT
  Age: 70 Year
  Sex: Male
  Weight: 55.8 kg

DRUGS (4)
  1. ITRACONAZOLE. [Interacting]
     Active Substance: ITRACONAZOLE
     Indication: FUNGAL INFECTION
     Dosage: UNK
     Route: 048
  2. DEXAMETHASONE. [Concomitant]
     Active Substance: DEXAMETHASONE
     Indication: PLASMA CELL MYELOMA
     Dosage: 20 MG/BODY: DAY 1, 2, 4, 5, 8, 9, 11, 12
     Route: 065
  3. BORTEZOMIB [Interacting]
     Active Substance: BORTEZOMIB
     Indication: PLASMA CELL MYELOMA
     Dosage: 1.3MG/M^2:DAY 1,4,8 AND 11
     Route: 065
     Dates: start: 201008
  4. FLUCONAZOLE. [Suspect]
     Active Substance: FLUCONAZOLE
     Indication: FUNGAL INFECTION
     Dosage: UNK
     Route: 065

REACTIONS (4)
  - Ileus paralytic [Recovering/Resolving]
  - Drug interaction [Unknown]
  - Neuropathy peripheral [Recovering/Resolving]
  - Urinary retention [Not Recovered/Not Resolved]
